FAERS Safety Report 6815737-4 (Version None)
Quarter: 2010Q3

REPORT INFORMATION
  Report Type: 
  Country: None (occurrence: None)
  Receive Date: 20100702
  Receipt Date: 20100625
  Transmission Date: 20110219
  Serious: Yes (Other)
  Sender: FDA-Public Use
  Company Number: AU-AMGEN-QUU416515

PATIENT
  Sex: Female

DRUGS (4)
  1. NPLATE [Suspect]
     Indication: IDIOPATHIC THROMBOCYTOPENIC PURPURA
     Dates: start: 20100215
  2. PREDNISOLONE [Concomitant]
     Route: 048
  3. VINCRISTINE [Concomitant]
     Route: 042
  4. PLATELETS [Concomitant]

REACTIONS (6)
  - GASTROINTESTINAL HAEMORRHAGE [None]
  - HAEMATURIA [None]
  - HEADACHE [None]
  - MALAISE [None]
  - MUCOSAL HAEMORRHAGE [None]
  - THERAPEUTIC RESPONSE DECREASED [None]
